FAERS Safety Report 20703535 (Version 1)
Quarter: 2022Q2

REPORT INFORMATION
  Report Type: Report from Study
  Country: US (occurrence: US)
  Receive Date: 20220413
  Receipt Date: 20220413
  Transmission Date: 20220720
  Serious: No
  Sender: FDA-Public Use
  Company Number: US-NOVARTISTESTPH-NVSC2022US083434

PATIENT
  Sex: Male

DRUGS (1)
  1. ENTRESTO [Suspect]
     Active Substance: SACUBITRIL\VALSARTAN
     Indication: Product used for unknown indication
     Dosage: 200 MG, BID, ( 97.2 MG SACUBITRIL AND 102.8 MG VALSARTAN)
     Route: 048
     Dates: start: 202109

REACTIONS (2)
  - Heart rate decreased [Unknown]
  - Blood pressure abnormal [Unknown]
